FAERS Safety Report 16967306 (Version 2)
Quarter: 2019Q4

REPORT INFORMATION
  Report Type: Report from Study
  Country: DE (occurrence: DE)
  Receive Date: 20191028
  Receipt Date: 20191118
  Transmission Date: 20200122
  Serious: No
  Sender: FDA-Public Use
  Company Number: DE-SHIRE-DE201929100

PATIENT

DRUGS (3)
  1. 643 (LANADELUMAB) [Suspect]
     Active Substance: LANADELUMAB
     Dosage: UNK MILLIGRAM, EVERY 3 WK
     Route: 058
     Dates: start: 20190928
  2. 643 (LANADELUMAB) [Suspect]
     Active Substance: LANADELUMAB
     Dosage: 300 MILLIGRAM, EVERY 3 WK
     Route: 058
     Dates: start: 20190903
  3. 643 (LANADELUMAB) [Suspect]
     Active Substance: LANADELUMAB
     Indication: HEREDITARY ANGIOEDEMA
     Dosage: 300 MILLIGRAM, EVERY 3 WK
     Route: 058
     Dates: start: 20190620

REACTIONS (3)
  - Nausea [Recovered/Resolved]
  - Injection site pain [Recovered/Resolved]
  - Headache [Unknown]

NARRATIVE: CASE EVENT DATE: 201909
